FAERS Safety Report 8424231-9 (Version None)
Quarter: 2012Q2

REPORT INFORMATION
  Report Type: 
  Country: None (occurrence: None)
  Receive Date: 20120608
  Receipt Date: 20120118
  Transmission Date: 20120825
  Serious: No
  Sender: FDA-Public Use
  Company Number: US-ASTRAZENECA-2012SE00453

PATIENT
  Age: 61 Year
  Sex: Male

DRUGS (2)
  1. OMEPRAZOLE [Concomitant]
  2. PULMICORT FLEXHALER [Suspect]
     Dosage: 180MCG ONE PUFF BID
     Route: 055

REACTIONS (2)
  - INCORRECT DOSE ADMINISTERED BY DEVICE [None]
  - CONDITION AGGRAVATED [None]
